FAERS Safety Report 19031348 (Version 1)
Quarter: 2021Q1

REPORT INFORMATION
  Report Type: Spontaneous
  Country: US (occurrence: US)
  Receive Date: 20210319
  Receipt Date: 20210319
  Transmission Date: 20210420
  Serious: Yes (Other)
  Sender: FDA-Public Use
  Company Number: US-AMGEN-USASP2021038411

PATIENT
  Sex: Female

DRUGS (2)
  1. FILGRASTIM [Suspect]
     Active Substance: FILGRASTIM
     Indication: HAEMATOPOIETIC STEM CELL MOBILISATION
     Dosage: 10 MILLIGRAM/KILOGRAM, QD
     Route: 058
  2. PLERIXAFOR [Concomitant]
     Active Substance: PLERIXAFOR
     Dosage: 240 MICROGRAM/KILOGRAM, QD
     Route: 058

REACTIONS (2)
  - Therapeutic product effect incomplete [Unknown]
  - Product contamination microbial [Unknown]
